FAERS Safety Report 23099753 (Version 1)
Quarter: 2023Q4

REPORT INFORMATION
  Report Type: Spontaneous
  Country: US (occurrence: None)
  Receive Date: 20231020
  Receipt Date: 20231020
  Transmission Date: 20240109
  Serious: Yes (Hospitalization)
  Sender: FDA-Public Use
  Company Number: None

PATIENT
  Age: 73 Year
  Sex: Male
  Weight: 92 kg

DRUGS (3)
  1. CARBOPLATIN [Suspect]
     Active Substance: CARBOPLATIN
     Dates: end: 20231004
  2. TAXOL [Suspect]
     Active Substance: PACLITAXEL
     Dates: end: 20231004
  3. TAXOL [Suspect]
     Active Substance: PACLITAXEL

REACTIONS (4)
  - Oesophagitis [None]
  - Atrial flutter [None]
  - Dehydration [None]
  - Dizziness [None]

NARRATIVE: CASE EVENT DATE: 20231017
